FAERS Safety Report 8890457 (Version 1)
Quarter: 2012Q4

REPORT INFORMATION
  Report Type: 
  Country: JP (occurrence: JP)
  Receive Date: 20121107
  Receipt Date: 20121107
  Transmission Date: 20130627
  Serious: Yes (Disabling)
  Sender: FDA-Public Use
  Company Number: JP-ACCORD-015111

PATIENT
  Age: 68 Year
  Sex: Male

DRUGS (1)
  1. PACLITAXEL [Suspect]
     Indication: GASTRIC CANCER
     Dosage: 8 cycles

REACTIONS (3)
  - Neuropathy peripheral [Recovering/Resolving]
  - Sleep disorder [Unknown]
  - Off label use [Unknown]
